FAERS Safety Report 9160005 (Version 2)
Quarter: 2013Q1

REPORT INFORMATION
  Report Type: Spontaneous
  Country: IT (occurrence: IT)
  Receive Date: 20130313
  Receipt Date: 20130321
  Transmission Date: 20140127
  Serious: Yes (Death, Other)
  Sender: FDA-Public Use
  Company Number: IT-CELGENEUS-083-50794-13014820

PATIENT
  Age: 58 Year
  Sex: Male

DRUGS (4)
  1. VIDAZA [Suspect]
     Indication: MYELODYSPLASTIC SYNDROME
     Route: 058
     Dates: start: 20110207, end: 20110621
  2. LANSOPRAZOLE [Concomitant]
     Indication: GASTRITIS
     Dosage: 1 CAPSULE
     Route: 048
  3. LISINOPRIL [Concomitant]
     Indication: HYPERTENSION
     Route: 048
  4. ERYTHROPOIETIN [Concomitant]
     Indication: MYELODYSPLASTIC SYNDROME
     Route: 058
     Dates: start: 20110215

REACTIONS (2)
  - Necrotising fasciitis [Fatal]
  - Adverse event [Unknown]
